FAERS Safety Report 9260030 (Version 1)
Quarter: 2013Q2

REPORT INFORMATION
  Report Type: Spontaneous
  Country: DE (occurrence: DE)
  Receive Date: 20130429
  Receipt Date: 20130429
  Transmission Date: 20140414
  Serious: Yes (Other)
  Sender: FDA-Public Use
  Company Number: DE-JNJFOC-20130413901

PATIENT
  Sex: Female

DRUGS (4)
  1. REGAINE FRAUEN [Suspect]
     Route: 061
  2. REGAINE FRAUEN [Suspect]
     Indication: ALOPECIA
     Route: 061
  3. METROCREAM [Concomitant]
     Indication: PSORIASIS
     Route: 061
  4. CLARELUX [Concomitant]
     Indication: PSORIASIS
     Dosage: CLOBETASOL PROPIONATE
     Route: 061

REACTIONS (3)
  - Psoriasis [Not Recovered/Not Resolved]
  - Drug administered to patient of inappropriate age [Unknown]
  - Contraindication to medical treatment [Unknown]
